FAERS Safety Report 7879502-1 (Version None)
Quarter: 2011Q4

REPORT INFORMATION
  Report Type: 
  Country: None (occurrence: None)
  Receive Date: 20111101
  Receipt Date: 20110103
  Transmission Date: 20120403
  Serious: No
  Sender: FDA-Public Use
  Company Number: US-ABBOTT-11P-163-0694857-00

PATIENT
  Sex: Female
  Weight: 65.83 kg

DRUGS (3)
  1. BIAXIN [Suspect]
     Indication: BRONCHITIS
     Route: 048
     Dates: start: 20101227, end: 20110102
  2. BIAXIN [Suspect]
     Indication: SINUSITIS
  3. SYNTHROID [Concomitant]
     Indication: PRODUCT USED FOR UNKNOWN INDICATION

REACTIONS (3)
  - APATHY [None]
  - DEPRESSION [None]
  - DECREASED APPETITE [None]
